FAERS Safety Report 14063530 (Version 2)
Quarter: 2018Q1

REPORT INFORMATION
  Report Type: Report from Study
  Country: US (occurrence: US)
  Receive Date: 20171009
  Receipt Date: 20180108
  Transmission Date: 20180508
  Serious: Yes (Hospitalization, Other)
  Sender: FDA-Public Use
  Company Number: US-BAYER-2017-186691

PATIENT
  Age: 61 Year
  Sex: Male

DRUGS (2)
  1. NEXAVAR [Suspect]
     Active Substance: SORAFENIB
     Indication: PROSTATE CANCER
     Dosage: 200 MG, QD
     Route: 048
  2. NEXAVAR [Suspect]
     Active Substance: SORAFENIB
     Indication: PROSTATE CANCER
     Dosage: DAILY DOSE 800 MG PER DAY
     Route: 048
     Dates: start: 20170912

REACTIONS (8)
  - Pain in extremity [None]
  - Gait disturbance [None]
  - Micturition urgency [None]
  - Off label use [None]
  - Product use in unapproved indication [None]
  - Peripheral swelling [None]
  - Urinary retention [None]
  - Palmar-plantar erythrodysaesthesia syndrome [None]

NARRATIVE: CASE EVENT DATE: 201709
